FAERS Safety Report 25379533 (Version 2)
Quarter: 2025Q2

REPORT INFORMATION
  Report Type: Spontaneous
  Country: FR (occurrence: FR)
  Receive Date: 20250530
  Receipt Date: 20250619
  Transmission Date: 20250717
  Serious: Yes (Other)
  Sender: AMGEN
  Company Number: None

PATIENT
  Age: 72 Year
  Sex: Female
  Weight: 71 kg

DRUGS (2)
  1. XGEVA [Suspect]
     Active Substance: DENOSUMAB
     Indication: Prophylaxis
     Dosage: 1 DOSAGE FORM, Q4WK, (120 MILLIGRAM)
     Route: 058
     Dates: start: 20090422, end: 20200212
  2. LETROZOLE [Suspect]
     Active Substance: LETROZOLE
     Indication: Breast cancer metastatic
     Dosage: 1 DOSAGE FORM, QD, (2.5 MILLIGRAM)
     Route: 048
     Dates: start: 20090801

REACTIONS (3)
  - Pathological fracture [Not Recovered/Not Resolved]
  - Femur fracture [Recovered/Resolved]
  - COVID-19 [Unknown]

NARRATIVE: CASE EVENT DATE: 20211123
